FAERS Safety Report 20724607 (Version 2)
Quarter: 2022Q2

REPORT INFORMATION
  Report Type: Spontaneous
  Country: CA (occurrence: CA)
  Receive Date: 20220419
  Receipt Date: 20220530
  Transmission Date: 20220721
  Serious: Yes (Disabling, Other)
  Sender: FDA-Public Use
  Company Number: CA-009507513-2204CAN005157

PATIENT
  Age: 30 Year
  Sex: Male
  Weight: 102.4 kg

DRUGS (3)
  1. KEYTRUDA [Suspect]
     Active Substance: PEMBROLIZUMAB
     Indication: Hodgkin^s disease recurrent
     Dosage: STRENGTH/DOSAGE: 1 DOSE VIAL, EVERY 3 WEEKS
     Route: 042
     Dates: start: 20210217, end: 2021
  2. KEYTRUDA [Suspect]
     Active Substance: PEMBROLIZUMAB
     Dosage: STRENGTH/DOSAGE: 1 DOSE VIAL, 400MG, EVERY 6 WEEKS
     Route: 042
     Dates: start: 2021, end: 20220406
  3. KEYTRUDA [Suspect]
     Active Substance: PEMBROLIZUMAB
     Dosage: 400 MILLIGRAM, EVERY 6 WEEKS
     Route: 042
     Dates: start: 20220427

REACTIONS (2)
  - Osteonecrosis [Recovering/Resolving]
  - Osteonecrosis [Unknown]

NARRATIVE: CASE EVENT DATE: 20210601
